FAERS Safety Report 21747661 (Version 1)
Quarter: 2022Q4

REPORT INFORMATION
  Report Type: Spontaneous
  Country: US (occurrence: US)
  Receive Date: 20221219
  Receipt Date: 20221219
  Transmission Date: 20230113
  Serious: Yes (Hospitalization)
  Sender: FDA-Public Use
  Company Number: US-JNJFOC-20221227418

PATIENT
  Age: 15 Year
  Sex: Female
  Weight: 33.596 kg

DRUGS (1)
  1. REMICADE [Suspect]
     Active Substance: INFLIXIMAB
     Indication: Crohn^s disease
     Route: 041
     Dates: start: 202111, end: 2022

REACTIONS (3)
  - Crohn^s disease [Not Recovered/Not Resolved]
  - Drug specific antibody [Unknown]
  - Drug ineffective [Unknown]
